FAERS Safety Report 7590388-5 (Version None)
Quarter: 2011Q3

REPORT INFORMATION
  Report Type: 
  Country: None (occurrence: None)
  Receive Date: 20110705
  Receipt Date: 20110623
  Transmission Date: 20111222
  Serious: Yes (Hospitalization)
  Sender: FDA-Public Use
  Company Number: PHHY2011DE55955

PATIENT
  Age: 59 Year

DRUGS (2)
  1. TRAMADOL HCL [Suspect]
     Dosage: 100 MG, TID
  2. METHIMAZOLE [Concomitant]
     Dosage: UNK

REACTIONS (4)
  - GENE MUTATION [None]
  - VERTIGO [None]
  - DIZZINESS [None]
  - PAIN [None]
